FAERS Safety Report 13077936 (Version 3)
Quarter: 2017Q1

REPORT INFORMATION
  Report Type: Spontaneous
  Country: US (occurrence: US)
  Receive Date: 20170102
  Receipt Date: 20170203
  Transmission Date: 20170428
  Serious: Yes (Death, Other)
  Sender: FDA-Public Use
  Company Number: US-009507513-1612USA014433

PATIENT
  Age: 58 Year
  Sex: Female

DRUGS (3)
  1. CISPLATIN. [Suspect]
     Active Substance: CISPLATIN
     Indication: URETHRAL CANCER
     Dosage: 2 CYCLES
     Dates: end: 20160729
  2. EMEND [Suspect]
     Active Substance: APREPITANT
     Indication: URETHRAL CANCER
     Dosage: 2 CYCLES
     Route: 042
     Dates: start: 20160629, end: 20160729
  3. GEMCITABINE [Suspect]
     Active Substance: GEMCITABINE\GEMCITABINE HYDROCHLORIDE
     Indication: URETHRAL CANCER
     Dosage: 2 CYCLES
     Dates: end: 20160729

REACTIONS (5)
  - Transitional cell cancer of the renal pelvis and ureter [Fatal]
  - Vena cava thrombosis [Fatal]
  - Metastases to liver [Fatal]
  - Drug ineffective [Not Recovered/Not Resolved]
  - Product use issue [Unknown]

NARRATIVE: CASE EVENT DATE: 201606
